FAERS Safety Report 10064325 (Version 1)
Quarter: 2014Q2

REPORT INFORMATION
  Report Type: Spontaneous
  Country: TR (occurrence: TR)
  Receive Date: 20140408
  Receipt Date: 20140408
  Transmission Date: 20141212
  Serious: Yes (Life-Threatening)
  Sender: FDA-Public Use
  Company Number: TR-ELI_LILLY_AND_COMPANY-TR201404001264

PATIENT
  Age: 40 Year
  Sex: 0

DRUGS (2)
  1. CYMBALTA [Suspect]
     Indication: FIBROMYALGIA
     Dosage: 30 MG, DAILY
     Route: 048
  2. CYMBALTA [Suspect]
     Dosage: 30MG, DAILY
     Route: 048

REACTIONS (1)
  - Depression [Recovered/Resolved]
